FAERS Safety Report 9366784 (Version 4)
Quarter: 2013Q3

REPORT INFORMATION
  Report Type: Spontaneous
  Country: US (occurrence: US)
  Receive Date: 20130625
  Receipt Date: 20130926
  Transmission Date: 20140515
  Serious: Yes (Death, Hospitalization, Other)
  Sender: FDA-Public Use
  Company Number: US-CELGENEUS-163-21880-13051397

PATIENT
  Age: 67 Year
  Sex: Female

DRUGS (1)
  1. REVLIMID [Suspect]
     Indication: PLASMA CELL MYELOMA
     Dosage: 25 MILLIGRAM
     Route: 048
     Dates: start: 20121227, end: 201302

REACTIONS (4)
  - Sepsis [Fatal]
  - IIIrd nerve paralysis [Recovered/Resolved]
  - Haemoglobin decreased [Recovered/Resolved]
  - Rash [Recovered/Resolved]
